FAERS Safety Report 12195494 (Version 1)
Quarter: 2016Q1

REPORT INFORMATION
  Report Type: Spontaneous
  Country: US (occurrence: US)
  Receive Date: 20160321
  Receipt Date: 20160321
  Transmission Date: 20160526
  Serious: No
  Sender: FDA-Public Use
  Company Number: US-WARNER CHILCOTT, LLC-1049363

PATIENT
  Sex: Female

DRUGS (9)
  1. VOLTAREN [Concomitant]
     Active Substance: DICLOFENAC SODIUM
  2. PRAVACHOL [Concomitant]
     Active Substance: PRAVASTATIN SODIUM
  3. PLAQUENIL [Concomitant]
     Active Substance: HYDROXYCHLOROQUINE SULFATE
  4. PALGIC [Concomitant]
     Active Substance: CARBINOXAMINE MALEATE
  5. CYMBALTA [Concomitant]
     Active Substance: DULOXETINE HYDROCHLORIDE
  6. ESTRACE [Suspect]
     Active Substance: ESTRADIOL
     Route: 067
     Dates: start: 201301
  7. PROVERA [Suspect]
     Active Substance: MEDROXYPROGESTERONE ACETATE
     Route: 048
     Dates: start: 2013
  8. DEXLANSOPRAZOLE [Concomitant]
     Active Substance: DEXLANSOPRAZOLE
  9. BENTYL [Concomitant]
     Active Substance: DICYCLOMINE HYDROCHLORIDE

REACTIONS (5)
  - Genital herpes [Unknown]
  - Vaginal discharge [Unknown]
  - Cervicitis [Unknown]
  - Postmenopausal haemorrhage [Recovered/Resolved]
  - Uterine cervix stenosis [Unknown]

NARRATIVE: CASE EVENT DATE: 2013
